FAERS Safety Report 8887808 (Version 1)
Quarter: 2012Q4

REPORT INFORMATION
  Report Type: 
  Country: US (occurrence: US)
  Receive Date: 20121106
  Receipt Date: 20121106
  Transmission Date: 20130627
  Serious: No
  Sender: FDA-Public Use
  Company Number: US-ASTRAZENECA-2012SE82194

PATIENT
  Age: 70 Year
  Sex: Female

DRUGS (1)
  1. SEROQUEL [Suspect]
     Route: 048

REACTIONS (6)
  - Visual impairment [Unknown]
  - Hearing impaired [Unknown]
  - Weight decreased [Unknown]
  - Tooth loss [Unknown]
  - Aphagia [Unknown]
  - Stress [Unknown]
